FAERS Safety Report 16982256 (Version 2)
Quarter: 2019Q4

REPORT INFORMATION
  Report Type: Spontaneous
  Country: US (occurrence: US)
  Receive Date: 20191101
  Receipt Date: 20191213
  Transmission Date: 20200122
  Serious: No
  Sender: FDA-Public Use
  Company Number: US-ASTRAZENECA-2019SF43311

PATIENT
  Sex: Female
  Weight: 43.5 kg

DRUGS (5)
  1. SYMBICORT [Suspect]
     Active Substance: BUDESONIDE\FORMOTEROL FUMARATE DIHYDRATE
     Indication: ASTHMA
     Dosage: 160/4.5 UG; UNKNOWN DOSE TWO TIMES A DAY
     Route: 055
     Dates: start: 20150505
  2. SYMBICORT [Suspect]
     Active Substance: BUDESONIDE\FORMOTEROL FUMARATE DIHYDRATE
     Indication: EMPHYSEMA
     Dosage: 160/4.5 UG; UNKNOWN DOSE TWO TIMES A DAY
     Route: 055
     Dates: start: 20150505
  3. PREDNISONE. [Concomitant]
     Active Substance: PREDNISONE
  4. SYMBICORT [Suspect]
     Active Substance: BUDESONIDE\FORMOTEROL FUMARATE DIHYDRATE
     Indication: CHRONIC OBSTRUCTIVE PULMONARY DISEASE
     Dosage: 160/4.5 UG; UNKNOWN DOSE TWO TIMES A DAY
     Route: 055
     Dates: start: 20150505
  5. SPIRIVA [Concomitant]
     Active Substance: TIOTROPIUM BROMIDE MONOHYDRATE

REACTIONS (3)
  - Product packaging quantity issue [Unknown]
  - Dyspnoea [Unknown]
  - Cough [Unknown]
